FAERS Safety Report 6339686-3 (Version None)
Quarter: 2009Q3

REPORT INFORMATION
  Report Type: 
  Country: None (occurrence: None)
  Receive Date: 20090903
  Receipt Date: 20081111
  Transmission Date: 20100115
  Serious: Yes (Other)
  Sender: FDA-Public Use
  Company Number: US-PFIZER INC-2008080030

PATIENT
  Sex: Male
  Weight: 109.54 kg

DRUGS (10)
  1. SPIRONOLACTONE [Suspect]
     Indication: PRIMARY HYPERALDOSTERONISM
     Dates: start: 20080101, end: 20080101
  2. SPIRONOLACTONE [Suspect]
     Indication: HYPERALDOSTERONISM
  3. AMLODIPINE BESYLATE [Suspect]
  4. CLONIDINE [Suspect]
  5. GARLIC [Concomitant]
  6. LINSEED OIL [Concomitant]
  7. ONE-A-DAY [Concomitant]
  8. VITAMINS [Concomitant]
  9. METOPROLOL [Concomitant]
  10. HYDROCHLOROTHIAZIDE [Concomitant]

REACTIONS (4)
  - CHEST PAIN [None]
  - DRUG INTOLERANCE [None]
  - GYNAECOMASTIA [None]
  - HYDROCELE [None]
